FAERS Safety Report 21278395 (Version 2)
Quarter: 2023Q4

REPORT INFORMATION
  Report Type: Spontaneous
  Country: US (occurrence: US)
  Receive Date: 20220831
  Receipt Date: 20231222
  Transmission Date: 20240110
  Serious: Yes (Other)
  Sender: FDA-Public Use
  Company Number: US-Blueprint Medicines Corporation-SP-US-2022-002646

PATIENT
  Age: 75 Year
  Sex: Male

DRUGS (2)
  1. AYVAKIT [Suspect]
     Active Substance: AVAPRITINIB
     Indication: Systemic mastocytosis
     Route: 048
     Dates: start: 20210901
  2. AYVAKIT [Suspect]
     Active Substance: AVAPRITINIB
     Indication: Advanced systemic mastocytosis
     Route: 048
     Dates: start: 20220311

REACTIONS (5)
  - Hallucination [Recovering/Resolving]
  - Photosensitivity reaction [Not Recovered/Not Resolved]
  - Fatigue [Recovering/Resolving]
  - Lacrimation increased [Recovering/Resolving]
  - Tryptase increased [Recovering/Resolving]

NARRATIVE: CASE EVENT DATE: 20220817
